FAERS Safety Report 15359951 (Version 2)
Quarter: 2018Q3

REPORT INFORMATION
  Report Type: Spontaneous
  Country: FR (occurrence: FR)
  Receive Date: 20180907
  Receipt Date: 20180915
  Transmission Date: 20181010
  Serious: Yes (Hospitalization, Other)
  Sender: FDA-Public Use
  Company Number: FR-AUROBINDO-AUR-APL-2018-044850

PATIENT
  Age: 50 Year
  Sex: Female

DRUGS (8)
  1. METHYLPREDNISOLONE. [Suspect]
     Active Substance: METHYLPREDNISOLONE
     Indication: IMMUNOSUPPRESSANT DRUG THERAPY
     Dosage: 250 MILLIGRAM, INDUCTION THERAPY
     Route: 065
  2. MYCOPHENOLIC ACID. [Suspect]
     Active Substance: MYCOPHENOLIC ACID
     Indication: IMMUNOSUPPRESSANT DRUG THERAPY
     Dosage: UNK, MAINTENANCE THERAPY
     Route: 065
  3. PREDNISONE. [Suspect]
     Active Substance: PREDNISONE
     Indication: IMMUNOSUPPRESSANT DRUG THERAPY
     Dosage: 10 MILLIGRAM, ONCE A DAY, MAINTENANCE THERAPY
     Route: 065
  4. OFLOXACIN. [Suspect]
     Active Substance: OFLOXACIN
     Indication: SALMONELLOSIS
     Dosage: FOR 5 DAYS
     Route: 065
  5. PIPERACILLIN AND TAZOBACTAM [Suspect]
     Active Substance: PIPERACILLIN SODIUM\TAZOBACTAM SODIUM
     Indication: ESCHERICHIA INFECTION
     Dosage: UNK
     Route: 065
  6. ANTILYMPHOCYTE SERUM [Suspect]
     Active Substance: THYMOCYTE IMMUNE GLOBULIN NOS
     Indication: IMMUNOSUPPRESSANT DRUG THERAPY
     Dosage: 75 MILLIGRAM, ONCE A DAY, INDUCTION THERAPY, FIRST 5 DAYS POST TRANSPLANTATION
     Route: 065
  7. AMOXICILLIN+CLAVULANIC ACID [Suspect]
     Active Substance: AMOXICILLIN\CLAVULANIC ACID
     Indication: ESCHERICHIA INFECTION
     Dosage: FOR 14 DAYS
     Route: 065
  8. TACROLIMUS. [Suspect]
     Active Substance: TACROLIMUS
     Indication: IMMUNOSUPPRESSANT DRUG THERAPY
     Dosage: UNK, MAINTENANCE THERAPY
     Route: 065

REACTIONS (9)
  - Diarrhoea infectious [Recovered/Resolved]
  - Candiduria [Recovered/Resolved]
  - Renal impairment [Unknown]
  - Salmonellosis [Recovered/Resolved]
  - Pyelonephritis [Recovered/Resolved]
  - Candida infection [Recovered/Resolved]
  - Lung infection [Recovered/Resolved]
  - Escherichia infection [Recovered/Resolved]
  - Pyrexia [Unknown]
